FAERS Safety Report 7131149-0 (Version None)
Quarter: 2010Q4

REPORT INFORMATION
  Report Type: 
  Country: None (occurrence: None)
  Receive Date: 20101201
  Receipt Date: 20101124
  Transmission Date: 20110411
  Serious: Yes (Other)
  Sender: FDA-Public Use
  Company Number: IT-PFIZER INC-2010158159

PATIENT
  Age: 28 Year
  Sex: Female

DRUGS (1)
  1. AZITHROMYCIN [Suspect]
     Dosage: 500 MG, TOTAL
     Route: 048
     Dates: start: 20101105, end: 20101105

REACTIONS (2)
  - PAIN IN EXTREMITY [None]
  - SKIN EXFOLIATION [None]
